FAERS Safety Report 17837426 (Version 3)
Quarter: 2020Q4

REPORT INFORMATION
  Report Type: Spontaneous
  Country: GB (occurrence: GB)
  Receive Date: 20200528
  Receipt Date: 20201103
  Transmission Date: 20210113
  Serious: Yes (Other)
  Sender: FDA-Public Use
  Company Number: NVSC2020GB141078

PATIENT
  Age: 74 Year
  Sex: Female

DRUGS (2)
  1. TEMAZEPAM. [Suspect]
     Active Substance: TEMAZEPAM
     Indication: INSOMNIA
     Dosage: UNK
     Route: 065
  2. TEMAZEPAM. [Suspect]
     Active Substance: TEMAZEPAM
     Dosage: 10 MG
     Route: 065
     Dates: start: 20180727

REACTIONS (4)
  - Drug ineffective [Unknown]
  - Transient ischaemic attack [Unknown]
  - Therapeutic product effect decreased [Unknown]
  - Drug tolerance [Unknown]
